FAERS Safety Report 25953040 (Version 2)
Quarter: 2025Q4

REPORT INFORMATION
  Report Type: Spontaneous
  Country: AU (occurrence: AU)
  Receive Date: 20251023
  Receipt Date: 20251031
  Transmission Date: 20260117
  Serious: Yes (Other)
  Sender: MYLAN
  Company Number: AU-MYLANLABS-2025M1088857

PATIENT
  Age: 47 Year
  Sex: Male
  Weight: 73 kg

DRUGS (9)
  1. CLOZARIL [Suspect]
     Active Substance: CLOZAPINE
     Indication: Schizophrenia
     Dosage: 500 MILLIGRAM, PM
     Dates: start: 20230711
  2. CLOZARIL [Suspect]
     Active Substance: CLOZAPINE
     Dosage: 450 MILLIGRAM, PM (NOCTE)
     Dates: start: 202504
  3. VENLAFAXINE HYDROCHLORIDE [Concomitant]
     Active Substance: VENLAFAXINE HYDROCHLORIDE
     Dosage: 225 MILLIGRAM, AM  (MANE)
  4. ATORVASTATIN [Concomitant]
     Active Substance: ATORVASTATIN
     Dosage: 20 MILLIGRAM, AM
  5. MOVICOL [Concomitant]
     Active Substance: POLYETHYLENE GLYCOL 3350\POTASSIUM CHLORIDE\SODIUM BICARBONATE\SODIUM CHLORIDE
     Dosage: 1 DOSAGE FORM, AM
  6. VITAMINS [Concomitant]
     Active Substance: VITAMINS
     Dosage: 1 DOSAGE FORM, AM (MANE)
  7. OLANZAPINE [Concomitant]
     Active Substance: OLANZAPINE
     Indication: Sleep disorder
     Dosage: UNK, PRN (10-20 MG NOCTE PRN FOR SLEEP)
  8. DOCUSATE [Concomitant]
     Active Substance: DOCUSATE
     Dosage: 2 DOSAGE FORM, PRN (BD)
  9. SENNA [Concomitant]
     Active Substance: SENNOSIDES
     Dosage: 2 DOSAGE FORM, PRN (BD)

REACTIONS (6)
  - Electrocardiogram QT prolonged [Not Recovered/Not Resolved]
  - Ejection fraction decreased [Unknown]
  - High density lipoprotein decreased [Unknown]
  - Blood lactate dehydrogenase decreased [Unknown]
  - Left ventricular dysfunction [Unknown]
  - Total cholesterol/HDL ratio increased [Unknown]

NARRATIVE: CASE EVENT DATE: 20250909
